FAERS Safety Report 8463310-7 (Version None)
Quarter: 2012Q2

REPORT INFORMATION
  Report Type: 
  Country: None (occurrence: None)
  Receive Date: 20120625
  Receipt Date: 20120614
  Transmission Date: 20120825
  Serious: Yes (Other)
  Sender: FDA-Public Use
  Company Number: JP-VERTEX PHARMACEUTICALS INC.-AE-2012-008973

PATIENT
  Age: 60 Year
  Sex: Male

DRUGS (12)
  1. ALLOPURINOL [Concomitant]
     Route: 048
     Dates: start: 20120510
  2. RIBAVIRIN [Concomitant]
     Route: 048
     Dates: start: 20120420, end: 20120423
  3. PEGINTERFERON ALFA-2B [Concomitant]
     Route: 058
     Dates: start: 20120420
  4. AMITRIPTYLINE HCL [Concomitant]
     Route: 048
     Dates: end: 20120430
  5. DEPAS [Concomitant]
     Route: 048
     Dates: end: 20120430
  6. NEXIUM [Concomitant]
     Route: 048
     Dates: start: 20120420
  7. URSO 250 [Concomitant]
     Route: 048
     Dates: end: 20120510
  8. TELAVIC (TELAPREVIR) [Suspect]
     Indication: HEPATITIS C
     Route: 048
     Dates: start: 20120420, end: 20120423
  9. RIBAVIRIN [Concomitant]
     Route: 048
     Dates: start: 20120427
  10. PROCHLORPERAZINE [Concomitant]
     Route: 048
     Dates: end: 20120430
  11. GOODMIN [Concomitant]
     Route: 048
     Dates: end: 20120430
  12. DIAZEPAM [Concomitant]
     Route: 048
     Dates: end: 20120430

REACTIONS (1)
  - RENAL DISORDER [None]
